FAERS Safety Report 6289159-1 (Version None)
Quarter: 2009Q3

REPORT INFORMATION
  Report Type: 
  Country: None (occurrence: None)
  Receive Date: 20090729
  Receipt Date: 20070522
  Transmission Date: 20100115
  Serious: Yes (Hospitalization, Other)
  Sender: FDA-Public Use
  Company Number: US-ASTRAZENECA-2006UW06049

PATIENT
  Age: 13263 Day
  Sex: Male
  Weight: 94.3 kg

DRUGS (19)
  1. SEROQUEL [Suspect]
     Indication: BIPOLAR DISORDER
     Dosage: 25-900 MG
     Route: 048
     Dates: start: 19991115
  2. SEROQUEL [Suspect]
     Dosage: 29-900MG
     Route: 048
     Dates: start: 20000101, end: 20051001
  3. SEROQUEL [Suspect]
     Route: 048
     Dates: start: 20060101
  4. CLONAZEPAM [Concomitant]
     Indication: ANXIETY
     Dates: start: 20030703
  5. CELEXA [Concomitant]
     Route: 048
     Dates: start: 20020515
  6. LORTAB [Concomitant]
     Dosage: 5/500
     Dates: start: 20001218
  7. TOPAMAX [Concomitant]
     Dosage: 25-200 MG
     Dates: start: 20000324
  8. METOPROLOL TARTRATE [Concomitant]
     Dates: start: 20020814
  9. ACETAMINOPHEN/COD [Concomitant]
     Dates: start: 20000620
  10. PREVACID [Concomitant]
     Dates: start: 20001023
  11. NAPROXEN [Concomitant]
     Dates: start: 20001027
  12. PEPCID [Concomitant]
     Dates: start: 20001110
  13. ZOLOFT [Concomitant]
     Dosage: 50-200 MG
     Dates: start: 20010206
  14. SONATA [Concomitant]
     Dates: start: 20010530
  15. TRAZODONE HCL [Concomitant]
     Dosage: 150-200 MG
     Route: 048
     Dates: start: 19981130
  16. DEPAKOTE [Concomitant]
     Dosage: 500-2000 MG
     Route: 048
     Dates: start: 19991115, end: 20000419
  17. WELLBUTRIN SR [Concomitant]
     Route: 048
     Dates: start: 19970908
  18. THORAZINE [Concomitant]
     Indication: SLEEP DISORDER
     Dosage: 200-300 MG
     Route: 048
     Dates: start: 19990210
  19. GABITRIL [Concomitant]
     Dosage: 4-8 MG, TWICE DAILY
     Dates: start: 20030602

REACTIONS (3)
  - ALCOHOLIC PANCREATITIS [None]
  - PANCREATITIS [None]
  - PANCREATITIS ACUTE [None]
